FAERS Safety Report 23547348 (Version 1)
Quarter: 2024Q1

REPORT INFORMATION
  Report Type: Spontaneous
  Country: CN (occurrence: CN)
  Receive Date: 20240221
  Receipt Date: 20240221
  Transmission Date: 20240409
  Serious: Yes (Other)
  Sender: FDA-Public Use
  Company Number: CN-002147023-NVSC2023CN213154

PATIENT
  Age: 75 Year
  Sex: Female
  Weight: 60 kg

DRUGS (1)
  1. ZOLEDRONIC ACID [Suspect]
     Active Substance: ZOLEDRONIC ACID
     Indication: Osteoporosis
     Dosage: 100 ML, QD
     Route: 041
     Dates: start: 20230918, end: 20230918

REACTIONS (12)
  - Cognitive disorder [Recovering/Resolving]
  - Urinary incontinence [Recovering/Resolving]
  - Tachypnoea [Recovering/Resolving]
  - Blood pressure increased [Unknown]
  - Vomiting [Recovering/Resolving]
  - Pyrexia [Recovering/Resolving]
  - Mental disorder [Recovering/Resolving]
  - Cyanosis [Recovering/Resolving]
  - Heart rate increased [Unknown]
  - Respiratory rate increased [Unknown]
  - Body temperature increased [Recovering/Resolving]
  - Dyspnoea [Unknown]

NARRATIVE: CASE EVENT DATE: 20230918
